FAERS Safety Report 16623183 (Version 1)
Quarter: 2019Q3

REPORT INFORMATION
  Report Type: Spontaneous
  Country: US (occurrence: US)
  Receive Date: 20190723
  Receipt Date: 20190723
  Transmission Date: 20191004
  Serious: No
  Sender: FDA-Public Use
  Company Number: US-IMPAX LABORATORIES, LLC-2019-IPXL-00666

PATIENT
  Age: 72 Year
  Sex: Male
  Weight: 74 kg

DRUGS (19)
  1. IMODIUM [Concomitant]
     Active Substance: LOPERAMIDE HYDROCHLORIDE
     Indication: DIARRHOEA
     Dosage: 2 MILLIGRAM (TABLET AS NEEDED)
     Route: 065
  2. TYLENOL [Concomitant]
     Active Substance: ACETAMINOPHEN
     Indication: PYREXIA
     Dosage: 500 MILLIGRAM (AS NEEDED)
     Route: 065
  3. VITAMIN B12 [Concomitant]
     Active Substance: CYANOCOBALAMIN
     Indication: VITAMIN SUPPLEMENTATION
     Dosage: 1000 MICROGRAM, 1 /MONTH
     Route: 065
     Dates: start: 2011
  4. POMALYST [Concomitant]
     Active Substance: POMALIDOMIDE
     Indication: CHEMOTHERAPY
     Dosage: 2 MILLIGRAM, 1 /DAY (FOR 21 DAYS AND THEN OFF FOR 7 DAYS)
     Route: 048
  5. SPIRONOLACTONE. [Concomitant]
     Active Substance: SPIRONOLACTONE
     Indication: SWELLING
     Dosage: 25MG HALF TABLET ONCE A DAY BY MOUTH
     Route: 048
  6. VITRON-C [Concomitant]
     Active Substance: ASCORBIC ACID\IRON
     Indication: MINERAL SUPPLEMENTATION
     Dosage: TABLET TWICE A DAY
     Route: 048
     Dates: start: 2011
  7. ONDANSETRON [Concomitant]
     Active Substance: ONDANSETRON
     Indication: NAUSEA
     Dosage: 4 MILLIGRAM, EVERY 6HR (AS NEEDED)
     Route: 065
     Dates: start: 2015
  8. MIDODRINE HYDROCHLORIDE. [Suspect]
     Active Substance: MIDODRINE HYDROCHLORIDE
     Indication: HYPERDYNAMIC LEFT VENTRICLE
     Dosage: 5 MILLIGRAM, TID
     Route: 065
     Dates: start: 2017
  9. ONDANSETRON [Concomitant]
     Active Substance: ONDANSETRON
     Indication: VOMITING
  10. DEXAMETHASONE. [Concomitant]
     Active Substance: DEXAMETHASONE
     Indication: PROPHYLACTIC CHEMOTHERAPY
     Dosage: 4 MG, 5 TABLETS ONCE A WEEK
     Route: 048
  11. BACTRIM [Concomitant]
     Active Substance: SULFAMETHOXAZOLE\TRIMETHOPRIM
     Indication: INFECTION PROPHYLAXIS
     Dosage: UNK, 1 /DAY (400/80MG)
     Route: 048
     Dates: start: 200808
  12. FLUCONAZOLE. [Concomitant]
     Active Substance: FLUCONAZOLE
     Indication: INFECTION PROPHYLAXIS
     Dosage: 250 MILLIGRAM, DAILY
     Route: 048
     Dates: start: 2011
  13. DIPHENOXYLATE/ATROPINE [Suspect]
     Active Substance: ATROPINE\DIPHENOXYLATE
     Indication: DIARRHOEA
     Dosage: 1 DOSAGE FORM, QID (2.5/0.025MG)
     Route: 048
     Dates: start: 20170605, end: 201707
  14. ACYCLOVIR. [Concomitant]
     Active Substance: ACYCLOVIR
     Indication: PROPHYLAXIS
     Dosage: 400 MILLIGRAM, BID
     Route: 048
     Dates: start: 200808
  15. ELIQUIS [Concomitant]
     Active Substance: APIXABAN
     Indication: THROMBOSIS
     Dosage: 2.5 MILLIGRAM,TWICE A DAY
     Route: 048
     Dates: start: 201701
  16. RANITIDINE. [Concomitant]
     Active Substance: RANITIDINE
     Indication: HAEMORRHAGE PROPHYLAXIS
     Dosage: 150 MILLIGRAM, BID
     Route: 048
  17. VELCADE [Concomitant]
     Active Substance: BORTEZOMIB
     Indication: PRODUCT USED FOR UNKNOWN INDICATION
     Dosage: UNK
     Route: 065
  18. FENTANYL. [Concomitant]
     Active Substance: FENTANYL
     Indication: PAIN
     Dosage: 25 MILLIGRAM (PATCH APPLIED EVERY THREE DAYS)
     Route: 065
     Dates: start: 201608
  19. ACETAMINOPHEN AND CODEINE [Concomitant]
     Active Substance: ACETAMINOPHEN\CODEINE PHOSPHATE
     Indication: BACK PAIN
     Dosage: 10/325MG TABLET EVERY 4 HOURS AS NEEDED
     Route: 065

REACTIONS (2)
  - Faecaloma [Recovered/Resolved]
  - Drug ineffective [Unknown]

NARRATIVE: CASE EVENT DATE: 20170621
